FAERS Safety Report 4627268-0 (Version None)
Quarter: 2005Q1

REPORT INFORMATION
  Report Type: 
  Country: None (occurrence: None)
  Receive Date: 20050331
  Receipt Date: 20050321
  Transmission Date: 20050727
  Serious: Yes (Hospitalization)
  Sender: FDA-Public Use
  Company Number: 2005040067

PATIENT
  Sex: Male

DRUGS (1)
  1. ESTRACYT (ESTRAMUSTINE PHOSPHATE SODIM) [Suspect]
     Indication: PROSTATE CANCER
     Dosage: 840 MG, ORAL
     Route: 048
     Dates: start: 20050219, end: 20050301

REACTIONS (3)
  - CEREBRAL INFARCTION [None]
  - CONFUSIONAL STATE [None]
  - PARESIS [None]
